FAERS Safety Report 11119232 (Version 3)
Quarter: 2015Q2

REPORT INFORMATION
  Report Type: Spontaneous
  Country: US (occurrence: US)
  Receive Date: 20150518
  Receipt Date: 20150625
  Transmission Date: 20150821
  Serious: No
  Sender: FDA-Public Use
  Company Number: US-PFIZER INC-2015165257

PATIENT
  Age: 76 Year
  Sex: Female
  Weight: 59 kg

DRUGS (16)
  1. PREMARIN [Suspect]
     Active Substance: ESTROGENS, CONJUGATED
     Indication: ASTHENIA
  2. MECLIZINE [Suspect]
     Active Substance: MECLIZINE\MECLIZINE HYDROCHLORIDE
     Indication: VERTIGO POSITIONAL
     Dosage: 25 MG, 2X/DAY
     Dates: start: 1990
  3. MECLIZINE [Suspect]
     Active Substance: MECLIZINE\MECLIZINE HYDROCHLORIDE
     Indication: MENIERE^S DISEASE
     Dosage: 25 MG, 1X/DAY
     Route: 048
     Dates: start: 1980
  4. PRILOSEC [Concomitant]
     Active Substance: OMEPRAZOLE MAGNESIUM
     Dosage: UNK
  5. MIACALCIN [Concomitant]
     Active Substance: CALCITONIN SALMON
     Indication: BONE DISORDER
     Dosage: UNK
     Dates: start: 2004, end: 2006
  6. PREMARIN [Suspect]
     Active Substance: ESTROGENS, CONJUGATED
     Indication: VULVOVAGINAL DRYNESS
     Dosage: 0.625 MG, 2X/WEEK (1 APPLICATOR FULL VAGINALLY 2XWEEKLY)
     Route: 067
  7. PREMARIN [Suspect]
     Active Substance: ESTROGENS, CONJUGATED
     Indication: HOT FLUSH
     Dosage: 0.625 MG, 1X/DAY
     Route: 048
     Dates: start: 1982
  8. LEVOTHYROXINE [Concomitant]
     Active Substance: LEVOTHYROXINE
     Dosage: 88 ?G, 1X/DAY
     Route: 048
  9. DEMADEX [Concomitant]
     Active Substance: TORSEMIDE
     Dosage: UNK
  10. PREMARIN [Suspect]
     Active Substance: ESTROGENS, CONJUGATED
     Indication: FATIGUE
  11. METOPROLOL [Concomitant]
     Active Substance: METOPROLOL
     Indication: HEART RATE
     Dosage: 5 MG, 1X/DAY
  12. FLEXERIL [Concomitant]
     Active Substance: CYCLOBENZAPRINE HYDROCHLORIDE
     Dosage: UNK
  13. NORTRIPTYLINE [Concomitant]
     Active Substance: NORTRIPTYLINE
     Indication: PERIPHERAL NERVE INJURY
  14. LOPRESSOR [Concomitant]
     Active Substance: METOPROLOL TARTRATE
     Indication: HEART RATE INCREASED
     Dosage: 25 MG, 1X/DAY
  15. NORTRIPTYLINE [Concomitant]
     Active Substance: NORTRIPTYLINE
     Indication: INSOMNIA
     Dosage: 10 MG, UNK
     Dates: start: 1990
  16. BONIVA [Concomitant]
     Active Substance: IBANDRONATE SODIUM
     Dosage: UNK

REACTIONS (2)
  - Ear disorder [Unknown]
  - Fungal infection [Unknown]
